FAERS Safety Report 19033926 (Version 6)
Quarter: 2024Q1

REPORT INFORMATION
  Report Type: Report from Study
  Country: AT (occurrence: AT)
  Receive Date: 20210319
  Receipt Date: 20240322
  Transmission Date: 20240409
  Serious: Yes (Other)
  Sender: FDA-Public Use
  Company Number: AT-ROCHE-2475540

PATIENT
  Age: 79 Year
  Sex: Female
  Weight: 48 kg

DRUGS (46)
  1. IBRANCE [Suspect]
     Active Substance: PALBOCICLIB
     Indication: HER2 positive breast cancer
     Dosage: 125 MG
     Route: 048
     Dates: start: 20190919, end: 20191018
  2. KADCYLA [Suspect]
     Active Substance: ADO-TRASTUZUMAB EMTANSINE
     Indication: HER2 positive breast cancer
     Dosage: 154 MG, EVERY 3 WEEKS
     Route: 042
     Dates: start: 20190704, end: 20190704
  3. KADCYLA [Suspect]
     Active Substance: ADO-TRASTUZUMAB EMTANSINE
     Indication: HER2 positive breast cancer
  4. HERCEPTIN [Suspect]
     Active Substance: TRASTUZUMAB
     Indication: HER2 positive breast cancer
     Dosage: 384 MG, EVERY 3 WEEKS
     Route: 042
     Dates: start: 20180810, end: 20180831
  5. HERCEPTIN [Suspect]
     Active Substance: TRASTUZUMAB
     Dosage: 384 MG, EVERY 3 WEEKS
     Route: 042
     Dates: start: 20180928, end: 20180928
  6. HERCEPTIN [Suspect]
     Active Substance: TRASTUZUMAB
     Dosage: 276 MG, EVERY 3 WEEKS
     Route: 042
     Dates: start: 20181019, end: 20181019
  7. HERCEPTIN [Suspect]
     Active Substance: TRASTUZUMAB
     Dosage: 288 MG
     Route: 042
     Dates: start: 20180831, end: 20180831
  8. NOLVADEX [Suspect]
     Active Substance: TAMOXIFEN CITRATE
     Indication: HER2 positive breast cancer
     Dosage: 20 MG
     Route: 048
     Dates: start: 20190819, end: 20190919
  9. ABRAXANE [Suspect]
     Active Substance: PACLITAXEL
     Indication: HER2 positive breast cancer
     Route: 042
     Dates: start: 20180928, end: 20181005
  10. ABRAXANE [Suspect]
     Active Substance: PACLITAXEL
     Dosage: 139.56 MG, WEEKLY
     Route: 042
     Dates: start: 20181019, end: 20181019
  11. HERCEPTIN [Suspect]
     Active Substance: TRASTUZUMAB
     Indication: HER2 positive breast cancer
     Dosage: 600 UNK, EVERY 3 WEEKS
     Route: 058
     Dates: start: 20190809, end: 20190909
  12. HERCEPTIN [Suspect]
     Active Substance: TRASTUZUMAB
     Dosage: 600 MG
     Route: 058
     Dates: start: 20181109, end: 20190520
  13. FASLODEX [Suspect]
     Active Substance: FULVESTRANT
     Indication: HER2 positive breast cancer
     Dosage: 500 MG, FREQUENCY: 4 WEEKS
     Route: 030
     Dates: start: 20190919, end: 20191112
  14. PACLITAXEL [Suspect]
     Active Substance: PACLITAXEL
     Indication: HER2 positive breast cancer
     Dosage: 113.69 MG, WEEKLY
     Route: 042
     Dates: start: 20180810, end: 20180914
  15. PERJETA [Suspect]
     Active Substance: PERTUZUMAB
     Indication: HER2 positive breast cancer
     Dosage: 840 MG, EVERY 3 WEEKS
     Route: 042
     Dates: start: 20180810, end: 20180810
  16. PERJETA [Suspect]
     Active Substance: PERTUZUMAB
     Dosage: 420 MG, EVERY 3 WEEKS
     Route: 042
     Dates: start: 20180831, end: 20180831
  17. FEMARA [Suspect]
     Active Substance: LETROZOLE
     Indication: HER2 positive breast cancer
     Dosage: 2.5 MG, 1X/DAY
     Route: 048
     Dates: start: 20181029, end: 20190613
  18. RANITIDINE HYDROCHLORIDE [Concomitant]
     Active Substance: RANITIDINE HYDROCHLORIDE
  19. ANTIFLAT [Concomitant]
     Dosage: ONGOING = CHECKED
     Dates: start: 20181126
  20. MEFENAMIC ACID [Concomitant]
     Active Substance: MEFENAMIC ACID
     Indication: Arthralgia
     Dosage: ONGOING = CHECKED
     Dates: start: 20180914
  21. DEXABENE [Concomitant]
  22. LOPERAMIDE HYDROCHLORIDE [Concomitant]
     Active Substance: LOPERAMIDE HYDROCHLORIDE
     Indication: Diarrhoea
     Dosage: ONGOING = CHECKED
     Dates: start: 20181127
  23. LORAZEPAM [Concomitant]
     Active Substance: LORAZEPAM
     Dosage: UNK
  24. DEXAMETHASONE [Concomitant]
     Active Substance: DEXAMETHASONE
     Dates: start: 20191115
  25. POLYETHYLENE GLYCOL 3350\POTASSIUM CHLORIDE\SODIUM BICARBONATE\SODIUM [Concomitant]
     Active Substance: POLYETHYLENE GLYCOL 3350\POTASSIUM CHLORIDE\SODIUM BICARBONATE\SODIUM CHLORIDE
     Dates: start: 20191115
  26. TRAZODONE HYDROCHLORIDE [Concomitant]
     Active Substance: TRAZODONE HYDROCHLORIDE
     Dosage: UNK
  27. LAFENE [Concomitant]
     Dosage: UNK
     Dates: end: 20191115
  28. CEOLAT [Concomitant]
     Dates: start: 20191115
  29. CIPROFLOXACIN [Concomitant]
     Active Substance: CIPROFLOXACIN
     Indication: Gastroenteritis radiation
     Dosage: ONGOING = NOT CHECKED
     Dates: start: 20181118
  30. METOCLOPRAMIDE HYDROCHLORIDE [Concomitant]
     Active Substance: METOCLOPRAMIDE HYDROCHLORIDE
     Indication: Nausea
     Dates: start: 20191108, end: 20191115
  31. AMLODIPINE BESYLATE [Concomitant]
     Active Substance: AMLODIPINE BESYLATE
  32. XGEVA [Concomitant]
     Active Substance: DENOSUMAB
     Dosage: UNK
  33. DEXIBUPROFEN [Concomitant]
     Active Substance: DEXIBUPROFEN
     Indication: Osteonecrosis of jaw
     Dates: start: 20190725, end: 20191015
  34. DIMETHINDENE MALEATE [Concomitant]
     Active Substance: DIMETHINDENE MALEATE
  35. LACTULOSE [Concomitant]
     Active Substance: LACTULOSE
     Dosage: UNK
     Dates: end: 20191115
  36. AVELOX [Concomitant]
     Active Substance: MOXIFLOXACIN HYDROCHLORIDE
     Indication: Osteonecrosis of jaw
     Dosage: ONGOING = NOT CHECKED
     Dates: start: 20190919, end: 20191101
  37. MORPHINE [Concomitant]
     Active Substance: MORPHINE
     Indication: Dyspnoea
     Dates: start: 20191111
  38. NOVALGINA [Concomitant]
     Active Substance: ACETAMINOPHEN\CAFFEINE
     Dosage: ONGOING = NOT CHECKED
     Dates: start: 20181126, end: 20191103
  39. LASIX [Concomitant]
     Active Substance: FUROSEMIDE
     Indication: Oedema peripheral
     Dates: start: 20191106, end: 20191115
  40. KONAKION [Concomitant]
     Active Substance: PHYTONADIONE
     Dates: start: 20191115
  41. TAZOBACTAM [Concomitant]
     Active Substance: TAZOBACTAM
     Indication: Infection
     Dosage: ONGOING = NOT CHECKED
     Dates: start: 20191102, end: 20191113
  42. MYCOSTATIN [Concomitant]
     Active Substance: NYSTATIN
     Indication: Mucosal inflammation
     Dosage: ONGOING = NOT CHECKED
     Dates: start: 20190819
  43. KYTRIL [Concomitant]
     Active Substance: GRANISETRON HYDROCHLORIDE
  44. PANTOPRAZOLE SODIUM [Concomitant]
     Active Substance: PANTOPRAZOLE SODIUM
     Indication: Abdominal pain upper
     Dosage: ONGOING = NOT CHECKED
     Dates: start: 20181109, end: 20191101
  45. SODIUM PICOSULFATE [Concomitant]
     Active Substance: SODIUM PICOSULFATE
     Dates: start: 20191115
  46. CAPHOSOL [CALCIUM CHLORIDE;SODIUM CHLORIDE;SODIUM PHOSPHATE DIBASIC;SO [Concomitant]
     Indication: Mucosal inflammation
     Dosage: ONGOING = NOT CHECKED
     Dates: start: 20180921

REACTIONS (3)
  - White blood cell count decreased [Recovered/Resolved]
  - Neutrophil count decreased [Recovered/Resolved]
  - Ascites [Recovering/Resolving]

NARRATIVE: CASE EVENT DATE: 20191004
